FAERS Safety Report 9390435 (Version 2)
Quarter: 2013Q3

REPORT INFORMATION
  Report Type: Report from Study
  Country: DE (occurrence: DE)
  Receive Date: 20130709
  Receipt Date: 20130712
  Transmission Date: 20140515
  Serious: Yes (Death, Hospitalization)
  Sender: FDA-Public Use
  Company Number: DE-ROCHE-1156144

PATIENT
  Age: 41 Year
  Sex: Female
  Weight: 62 kg

DRUGS (8)
  1. PERTUZUMAB [Suspect]
     Indication: BREAST CANCER
     Route: 042
     Dates: start: 20121113
  2. PACLITAXEL [Suspect]
     Indication: BREAST CANCER
     Dosage: DAY 1, 8, 15 AND 22
     Route: 042
     Dates: start: 20121015
  3. DEXAMETHASONE [Concomitant]
     Indication: PROPHYLAXIS
     Route: 048
     Dates: start: 20121113, end: 20121114
  4. DEXAMETHASONE [Concomitant]
     Dosage: 1X
     Route: 042
     Dates: start: 20121113, end: 20121113
  5. PANTOPRAZOL [Concomitant]
     Route: 065
  6. BIFITERAL [Concomitant]
     Dosage: 3X1 EC
     Route: 065
  7. MIRTAZAPIN [Concomitant]
     Route: 065
  8. ZOPICLONE [Concomitant]
     Route: 065

REACTIONS (2)
  - Neoplasm progression [Fatal]
  - Hypersensitivity [Recovered/Resolved]
